FAERS Safety Report 11615669 (Version 1)
Quarter: 2015Q4

REPORT INFORMATION
  Report Type: Spontaneous
  Country: US (occurrence: None)
  Receive Date: 20151008
  Receipt Date: 20151008
  Transmission Date: 20160304
  Serious: Yes (Other)
  Sender: FDA-Public Use
  Company Number: None

PATIENT
  Age: 72 Year
  Sex: Male
  Weight: 80.74 kg

DRUGS (11)
  1. SUCRALFATE. [Concomitant]
     Active Substance: SUCRALFATE
  2. SUCRALFATE. [Concomitant]
     Active Substance: SUCRALFATE
  3. ETOPOSIDE 100 MG/5ML ACCORD HEALTHCARE, INC [Suspect]
     Active Substance: ETOPOSIDE
     Indication: PROSTATE CANCER
     Dosage: 200/500 ML
     Route: 042
     Dates: start: 20150831, end: 20150831
  4. ETOPOSIDE 100MG/5ML ACCORD HEALTHCARE, INC. [Suspect]
     Active Substance: ETOPOSIDE
     Indication: PROSTATE CANCER
     Dosage: 200/500 MG/ML
     Route: 042
     Dates: start: 20150831, end: 20150831
  5. DEXAMETHASONE. [Concomitant]
     Active Substance: DEXAMETHASONE
  6. PALONOSETRON [Concomitant]
     Active Substance: PALONOSETRON
  7. BISACODYL. [Concomitant]
     Active Substance: BISACODYL
  8. ACETAMINOPHEN. [Concomitant]
     Active Substance: ACETAMINOPHEN
  9. DIPHENHYDRAMINE. [Concomitant]
     Active Substance: DIPHENHYDRAMINE
  10. PANTOPRAZOLE SODIUM. [Concomitant]
     Active Substance: PANTOPRAZOLE SODIUM
  11. PANTOPRAZOLE SODIUM. [Concomitant]
     Active Substance: PANTOPRAZOLE SODIUM

REACTIONS (4)
  - Hypotension [None]
  - Presyncope [None]
  - Dizziness [None]
  - Infusion related reaction [None]

NARRATIVE: CASE EVENT DATE: 20150831
